FAERS Safety Report 14930597 (Version 1)
Quarter: 2018Q2

REPORT INFORMATION
  Report Type: Spontaneous
  Country: GB (occurrence: GB)
  Receive Date: 20180523
  Receipt Date: 20180523
  Transmission Date: 20180711
  Serious: Yes (Other)
  Sender: FDA-Public Use
  Company Number: GB-TEVA-2018-GB-896791

PATIENT
  Age: 30 Year
  Sex: Female

DRUGS (1)
  1. TRAMADOL. [Suspect]
     Active Substance: TRAMADOL
     Indication: ANALGESIC THERAPY
     Dosage: 5 DOSAGE FORMS DAILY;
     Route: 048
     Dates: start: 20170701, end: 20180321

REACTIONS (1)
  - Cushing^s syndrome [Not Recovered/Not Resolved]

NARRATIVE: CASE EVENT DATE: 20170716
